FAERS Safety Report 26207594 (Version 1)
Quarter: 2025Q4

REPORT INFORMATION
  Report Type: Spontaneous
  Country: US (occurrence: US)
  Receive Date: 20251229
  Receipt Date: 20251229
  Transmission Date: 20260119
  Serious: Yes (Life-Threatening, Hospitalization)
  Sender: MYLAN
  Company Number: US-MYLANLABS-2025M1108549

PATIENT
  Age: 75 Year
  Sex: Male

DRUGS (1)
  1. METFORMIN [Suspect]
     Active Substance: METFORMIN HYDROCHLORIDE
     Indication: Type 2 diabetes mellitus
     Dosage: UNK

REACTIONS (10)
  - Lactic acidosis [Recovered/Resolved]
  - Respiratory distress [Recovering/Resolving]
  - Respiratory failure [Recovering/Resolving]
  - Metabolic acidosis [Recovered/Resolved]
  - Hypoglycaemia [Recovering/Resolving]
  - Acute kidney injury [Recovered/Resolved]
  - Leukocytosis [Recovering/Resolving]
  - Pneumonia [Recovering/Resolving]
  - Septic shock [Recovered/Resolved]
  - Mental status changes [Recovered/Resolved]
